FAERS Safety Report 7659631-8 (Version None)
Quarter: 2011Q3

REPORT INFORMATION
  Report Type: 
  Country: None (occurrence: None)
  Receive Date: 20110805
  Receipt Date: 20110726
  Transmission Date: 20111222
  Serious: Yes (Hospitalization)
  Sender: FDA-Public Use
  Company Number: US-MERCK-1106USA01458

PATIENT
  Age: 90 Year
  Sex: Female

DRUGS (1)
  1. ZOCOR [Suspect]
     Indication: BLOOD CHOLESTEROL INCREASED
     Route: 048
     Dates: end: 20110601

REACTIONS (8)
  - RENAL FAILURE CHRONIC [None]
  - RHABDOMYOLYSIS [None]
  - BLOOD POTASSIUM INCREASED [None]
  - DEHYDRATION [None]
  - RENAL FAILURE ACUTE [None]
  - DYSLIPIDAEMIA [None]
  - METASTASES TO ADRENALS [None]
  - PULMONARY MASS [None]
